FAERS Safety Report 7659655-0 (Version None)
Quarter: 2011Q3

REPORT INFORMATION
  Report Type: 
  Country: None (occurrence: None)
  Receive Date: 20110805
  Receipt Date: 20110727
  Transmission Date: 20111222
  Serious: Yes (Hospitalization)
  Sender: FDA-Public Use
  Company Number: BR-ASTRAZENECA-2011SE45605

PATIENT
  Age: 86 Year
  Sex: Female
  Weight: 85 kg

DRUGS (7)
  1. ATACAND [Suspect]
     Indication: HYPERTENSION
     Route: 048
     Dates: start: 20090101, end: 20110501
  2. METOPROLOL SUCCINATE [Suspect]
     Indication: HYPERTENSION
     Route: 048
  3. METOPROLOL SUCCINATE [Suspect]
     Indication: TACHYCARDIA
     Route: 048
  4. NEXIUM [Suspect]
     Indication: HIATUS HERNIA
     Route: 048
     Dates: start: 20090101
  5. CAPTOPRIL [Suspect]
     Indication: HYPERTENSION
     Route: 048
     Dates: end: 20110501
  6. HYDROCHLOROTHIAZIDE [Concomitant]
     Indication: HYPERTENSION
     Route: 048
  7. LEXOTAN [Concomitant]
     Indication: INSOMNIA
     Route: 048
     Dates: start: 20010101

REACTIONS (9)
  - BLOOD PRESSURE INADEQUATELY CONTROLLED [None]
  - PAIN IN EXTREMITY [None]
  - DRUG INEFFECTIVE [None]
  - ABDOMINAL PAIN UPPER [None]
  - OFF LABEL USE [None]
  - HEADACHE [None]
  - NECK PAIN [None]
  - HIATUS HERNIA [None]
  - DYSPEPSIA [None]
